FAERS Safety Report 8891386 (Version 1)
Quarter: 2012Q4

REPORT INFORMATION
  Report Type: Spontaneous
  Country: US (occurrence: None)
  Receive Date: 20121105
  Receipt Date: 20121105
  Transmission Date: 20130627
  Serious: Yes (Hospitalization)
  Sender: FDA-Public Use
  Company Number: None

PATIENT
  Age: 91 Year
  Sex: Male
  Weight: 105 kg

DRUGS (2)
  1. FUROSEMIDE [Suspect]
     Indication: OEDEMA
     Route: 048
     Dates: start: 19950322, end: 20121031
  2. SPIRONOLACTONE [Suspect]
     Indication: OEDEMA
     Route: 048
     Dates: start: 20120917, end: 20121031

REACTIONS (1)
  - Renal failure acute [None]
